FAERS Safety Report 15918615 (Version 3)
Quarter: 2019Q2

REPORT INFORMATION
  Report Type: Spontaneous
  Country: US (occurrence: US)
  Receive Date: 20190205
  Receipt Date: 20190613
  Transmission Date: 20190711
  Serious: No
  Sender: FDA-Public Use
  Company Number: US-SA-2019SA028813

PATIENT
  Age: 43 Year
  Sex: Male

DRUGS (1)
  1. ALPROLIX [Suspect]
     Active Substance: EFTRENONACOG ALFA
     Dosage: DOSE: 3 VIALS OF 4000 (12,000), QW
     Route: 042

REACTIONS (1)
  - Intentional product misuse [Not Recovered/Not Resolved]
